FAERS Safety Report 7952716-8 (Version None)
Quarter: 2011Q4

REPORT INFORMATION
  Report Type: 
  Country: None (occurrence: None)
  Receive Date: 20111201
  Receipt Date: 20111128
  Transmission Date: 20120403
  Serious: Yes (Death)
  Sender: FDA-Public Use
  Company Number: US-CELGENEUS-163-21880-11101498

PATIENT
  Sex: Female
  Weight: 70.3 kg

DRUGS (7)
  1. VELCADE [Concomitant]
     Dosage: 2 MILLIGRAM
     Route: 058
  2. NORVASC [Concomitant]
     Dosage: 10 MILLIGRAM
     Route: 048
  3. REVLIMID [Suspect]
     Dosage: 25 MILLIGRAM
     Route: 048
     Dates: start: 20110101, end: 20111006
  4. REVLIMID [Suspect]
     Indication: MULTIPLE MYELOMA
     Dosage: 25 MILLIGRAM
     Route: 048
     Dates: start: 20110518
  5. XANAX [Concomitant]
     Dosage: 10 MILLIGRAM
     Route: 048
  6. THIOTEPA [Concomitant]
     Route: 065
  7. COUMADIN [Concomitant]
     Route: 065

REACTIONS (1)
  - ACUTE RESPIRATORY DISTRESS SYNDROME [None]
